FAERS Safety Report 5080990-7 (Version None)
Quarter: 2006Q3

REPORT INFORMATION
  Report Type: 
  Country: None (occurrence: None)
  Receive Date: 20060816
  Receipt Date: 20060228
  Transmission Date: 20061208
  Serious: Yes (Hospitalization)
  Sender: FDA-Public Use
  Company Number: US-SP-2006-00483

PATIENT
  Age: 60 Year
  Sex: Female

DRUGS (4)
  1. THERACYS [Suspect]
     Indication: BLADDER CANCER
     Route: 043
     Dates: start: 20060104
  2. THERACYS [Suspect]
     Route: 043
     Dates: start: 20060104
  3. THERACYS [Suspect]
     Route: 043
     Dates: start: 20060104
  4. THERACYS [Suspect]
     Route: 043
     Dates: start: 20060104

REACTIONS (27)
  - ABDOMINAL DISTENSION [None]
  - ABDOMINAL PAIN [None]
  - ABDOMINAL TENDERNESS [None]
  - ANAEMIA [None]
  - ARTHRALGIA [None]
  - CLOSTRIDIUM DIFFICILE COLITIS [None]
  - COLD SWEAT [None]
  - COLONIC STENOSIS [None]
  - COUGH [None]
  - DEHYDRATION [None]
  - HYPOTENSION [None]
  - HYPOTRICHOSIS [None]
  - ILEUS [None]
  - JOINT SWELLING [None]
  - MUSCULAR WEAKNESS [None]
  - MYALGIA [None]
  - NAUSEA [None]
  - PERIPHERAL COLDNESS [None]
  - PSEUDOMEMBRANOUS COLITIS [None]
  - PULSE PRESSURE DECREASED [None]
  - RESPIRATORY ARREST [None]
  - RESPIRATORY FAILURE [None]
  - SEPSIS [None]
  - SEPTIC SHOCK [None]
  - TACHYCARDIA [None]
  - VOMITING [None]
  - WEIGHT DECREASED [None]
